FAERS Safety Report 5766635-9 (Version None)
Quarter: 2008Q2

REPORT INFORMATION
  Report Type: 
  Country: None (occurrence: None)
  Receive Date: 20080612
  Receipt Date: 20080604
  Transmission Date: 20081010
  Serious: Yes (Death)
  Sender: FDA-Public Use
  Company Number: FR-JNJFOC-20080602220

PATIENT
  Age: 36 Year
  Sex: Female

DRUGS (1)
  1. REOPRO [Suspect]
     Indication: INFARCTION

REACTIONS (1)
  - HAEMORRHAGE [None]
